FAERS Safety Report 7729827-5 (Version None)
Quarter: 2011Q3

REPORT INFORMATION
  Report Type: 
  Country: None (occurrence: None)
  Receive Date: 20110906
  Receipt Date: 20110826
  Transmission Date: 20111222
  Serious: Yes (Other)
  Sender: FDA-Public Use
  Company Number: JP-SANOFI-AVENTIS-2011SA056310

PATIENT
  Age: 20 Year
  Sex: Female

DRUGS (3)
  1. ZOLPIDEM [Suspect]
     Dosage: BEFORE SLEEP AROUND ONCE EVERY THREE DAYS.
     Route: 048
  2. CHLORPHENIRAMINE MALEATE [Concomitant]
  3. ZOLPIDEM [Interacting]
     Route: 048

REACTIONS (2)
  - ALCOHOL INTERACTION [None]
  - LOSS OF CONSCIOUSNESS [None]
